FAERS Safety Report 7349958-1 (Version None)
Quarter: 2011Q1

REPORT INFORMATION
  Report Type: 
  Country: None (occurrence: None)
  Receive Date: 20110314
  Receipt Date: 20110309
  Transmission Date: 20110831
  Serious: Yes (Hospitalization, Other)
  Sender: FDA-Public Use
  Company Number: FR-BRISTOL-MYERS SQUIBB COMPANY-15415623

PATIENT
  Age: 45 Year
  Sex: Female
  Weight: 103 kg

DRUGS (4)
  1. ONGLYZA [Suspect]
     Indication: TYPE 2 DIABETES MELLITUS
     Dosage: 1 TAB/D
     Dates: start: 20100926, end: 20101129
  2. INIPOMP [Concomitant]
  3. LEVOTHYROX [Concomitant]
  4. GLYBURIDE [Concomitant]

REACTIONS (2)
  - CYTOLYTIC HEPATITIS [None]
  - CHOLESTASIS [None]
